FAERS Safety Report 8241180-X (Version None)
Quarter: 2012Q1

REPORT INFORMATION
  Report Type: 
  Country: None (occurrence: None)
  Receive Date: 20120328
  Receipt Date: 20120327
  Transmission Date: 20120608
  Serious: Yes (Other)
  Sender: FDA-Public Use
  Company Number: IT-PFIZER INC-2012078929

PATIENT
  Age: 42 Year
  Sex: Female

DRUGS (1)
  1. HALCION [Suspect]
     Indication: INSOMNIA
     Dosage: 1 DF, 1X/DAY
     Route: 048
     Dates: start: 20120310, end: 20120317

REACTIONS (4)
  - SYNCOPE [None]
  - LOSS OF CONSCIOUSNESS [None]
  - FALL [None]
  - VERTIGO [None]
